FAERS Safety Report 5640277-8 (Version None)
Quarter: 2008Q1

REPORT INFORMATION
  Report Type: 
  Country: None (occurrence: None)
  Receive Date: 20080227
  Receipt Date: 20080130
  Transmission Date: 20080703
  Serious: No
  Sender: FDA-Public Use
  Company Number: US-BAXTER-2008BH000634

PATIENT
  Age: 9 Year
  Sex: Female
  Weight: 37 kg

DRUGS (5)
  1. HEPARIN SODIUM [Suspect]
     Indication: LOW DENSITY LIPOPROTEIN APHERESIS
     Route: 040
     Dates: start: 20080117, end: 20080117
  2. LIPITOR [Concomitant]
     Indication: TYPE IIA HYPERLIPIDAEMIA
     Route: 048
  3. ZETIA [Concomitant]
     Indication: HYPERCHOLESTEROLAEMIA
     Route: 048
  4. ASPIRIN [Concomitant]
     Indication: CARDIAC DISORDER
     Route: 048
  5. IRON [Concomitant]
     Indication: IRON DEFICIENCY
     Route: 048

REACTIONS (8)
  - ABDOMINAL PAIN UPPER [None]
  - AGITATION [None]
  - FACIAL PAIN [None]
  - HEADACHE [None]
  - NAUSEA [None]
  - TACHYCARDIA [None]
  - TREMOR [None]
  - VOMITING [None]
